FAERS Safety Report 5312527-9 (Version None)
Quarter: 2007Q2

REPORT INFORMATION
  Report Type: 
  Country: None (occurrence: None)
  Receive Date: 20070430
  Receipt Date: 20070103
  Transmission Date: 20071010
  Serious: No
  Sender: FDA-Public Use
  Company Number: 2007UW00192

PATIENT
  Age: 71 Year
  Sex: Female
  Weight: 59.9 kg

DRUGS (7)
  1. NEXIUM [Suspect]
     Indication: EROSIVE OESOPHAGITIS
     Route: 048
  2. NEXIUM [Suspect]
     Route: 048
  3. NEXIUM [Suspect]
     Route: 048
  4. ALTACE [Concomitant]
  5. ZYRTEC [Concomitant]
  6. HYDROCHLOROTHIAZIDE [Concomitant]
  7. VITAMIN CAP [Concomitant]

REACTIONS (3)
  - OCULAR HYPERAEMIA [None]
  - PARAESTHESIA [None]
  - VISUAL FIELD DEFECT [None]
